FAERS Safety Report 9116547 (Version 1)
Quarter: 2013Q1

REPORT INFORMATION
  Report Type: Spontaneous
  Country: IN (occurrence: IN)
  Receive Date: 20130225
  Receipt Date: 20130225
  Transmission Date: 20140127
  Serious: Yes (Life-Threatening, Hospitalization)
  Sender: FDA-Public Use
  Company Number: IN-B.I. PHARMACEUTICALS,INC./RIDGEFIELD-2013-CS-00180IG

PATIENT
  Sex: Male
  Weight: 74 kg

DRUGS (1)
  1. TRAJENTA [Suspect]
     Indication: BLOOD GLUCOSE INCREASED
     Dosage: DOSE: 5 MG
     Dates: start: 20130115, end: 20130130

REACTIONS (2)
  - Hyperglycaemia [Recovered/Resolved]
  - Pancreatitis [Recovered/Resolved]
